FAERS Safety Report 4289770-3 (Version None)
Quarter: 2004Q1

REPORT INFORMATION
  Report Type: 
  Country: None (occurrence: None)
  Receive Date: 20040210
  Receipt Date: 20040203
  Transmission Date: 20041129
  Serious: Yes (Death)
  Sender: FDA-Public Use
  Company Number: US-GLAXOSMITHKLINE-A0496701A

PATIENT
  Sex: Female

DRUGS (1)
  1. PAXIL [Suspect]
     Route: 048

REACTIONS (4)
  - COMPLETED SUICIDE [None]
  - DRUG LEVEL INCREASED [None]
  - FEAR [None]
  - NERVOUSNESS [None]
